FAERS Safety Report 24006926 (Version 1)
Quarter: 2024Q2

REPORT INFORMATION
  Report Type: Spontaneous
  Country: GB (occurrence: GB)
  Receive Date: 20240624
  Receipt Date: 20240624
  Transmission Date: 20240716
  Serious: Yes (Other)
  Sender: FDA-Public Use
  Company Number: GB-MYLANLABS-2024M1040744

PATIENT
  Age: 77 Year
  Sex: Female
  Weight: 86 kg

DRUGS (16)
  1. CARDURA XL [Suspect]
     Active Substance: DOXAZOSIN MESYLATE
     Indication: Hypertension
     Dosage: 16 MILLIGRAM, QD (16 MILLIGRAM, QD (2 TABLETS PER DAY)
     Route: 048
     Dates: start: 20240108, end: 20240131
  2. HIPREX [Concomitant]
     Active Substance: METHENAMINE HIPPURATE
     Dosage: 1 DOSAGE FORM, BID (ONE TO BE TAKEN TWICE A DAY WITH FOOD)
     Route: 065
  3. FAMOTIDINE [Concomitant]
     Active Substance: FAMOTIDINE
     Dosage: 1 DOSAGE FORM, BID (ONE TO BE TAKEN TWICE DAILY)
     Route: 065
  4. DOXAZOSIN MESYLATE [Concomitant]
     Active Substance: DOXAZOSIN MESYLATE
     Indication: Hypertension
     Dosage: 1 DOSAGE FORM, BID (ONE TO BE TAKEN TWICE A DAY)
     Route: 065
  5. BECLOMETHASONE\FORMOTEROL [Concomitant]
     Active Substance: BECLOMETHASONE\FORMOTEROL
     Dosage: UNK, BID (ONE PUFF TO BE INHALED TWICE A DAY)
     Route: 055
  6. ALBUTEROL [Concomitant]
     Active Substance: ALBUTEROL
     Indication: Dyspnoea
     Dosage: UNK (100 MICROGRAM PER PUFF/ ONE OR TWO PUFFS TO BE INHALED AS REQUIRED FOR BREATHLESSNESS)
     Route: 065
  7. CHOLECALCIFEROL [Concomitant]
     Active Substance: CHOLECALCIFEROL
     Dosage: 1 DOSAGE FORM, QD (ONE TO BE TAKEN EACH DAY)
     Route: 065
  8. ALENDRONIC ACID [Concomitant]
     Active Substance: ALENDRONIC ACID
     Dosage: 1 DOSAGE FORM, QD (ONE TO BE TAKEN ON SAME DAY EACH WEEK)
     Route: 065
  9. Evolve Carmellose [Concomitant]
     Dosage: UNK
     Route: 065
  10. DERMOL [Concomitant]
     Active Substance: BENZALKONIUM CHLORIDE\CHLORHEXIDINE HYDROCHLORIDE\ISOPROPYL MYRISTATE\PARAFFIN
     Dosage: TO BE USED AS SOAP SUBSTITUTE
     Route: 065
  11. LERCANIDIPINE HYDROCHLORIDE [Concomitant]
     Active Substance: LERCANIDIPINE HYDROCHLORIDE
     Dosage: 1 DOSAGE FORM, QD (ONE TO BE TAKEN EACH DAY)
     Route: 065
  12. Zerobase [Concomitant]
     Dosage: TO BE USED AS DIRECTED
     Route: 065
  13. Cetraben [Concomitant]
     Dosage: USE FREQUENTLY AS EMOLLIENT 3*450 GMS
     Route: 065
  14. CHLORPHENIRAMINE MALEATE [Concomitant]
     Active Substance: CHLORPHENIRAMINE MALEATE
     Dosage: 1 DOSAGE FORM, QID (1 TAB 4 TIMES DAILY PRN)
     Route: 065
  15. LOSARTAN POTASSIUM [Concomitant]
     Active Substance: LOSARTAN POTASSIUM
     Dosage: 1 DOSAGE FORM, QD (ONE TO BE TAKEN EACH DAY)
     Route: 065
  16. BEZAFIBRATE [Concomitant]
     Active Substance: BEZAFIBRATE
     Dosage: 1 DOSAGE FORM, QD (ONE TO BE TAKEN EACH DAY)
     Route: 065

REACTIONS (7)
  - Overdose [Unknown]
  - Heart rate increased [Recovered/Resolved]
  - Feeling abnormal [Recovered/Resolved]
  - Palpitations [Recovered/Resolved]
  - Dizziness [Recovered/Resolved]
  - Headache [Recovered/Resolved]
  - Product prescribing error [Unknown]

NARRATIVE: CASE EVENT DATE: 20240120
